FAERS Safety Report 17969962 (Version 2)
Quarter: 2021Q3

REPORT INFORMATION
  Report Type: Spontaneous
  Country: US (occurrence: US)
  Receive Date: 20200701
  Receipt Date: 20210923
  Transmission Date: 20211014
  Serious: Yes (Death, Other)
  Sender: FDA-Public Use
  Company Number: US-NAPPMUNDI-USA-2020-0152144

PATIENT
  Sex: Male

DRUGS (1)
  1. OXYCONTIN [Suspect]
     Active Substance: OXYCODONE HYDROCHLORIDE
     Indication: PAIN MANAGEMENT
     Dosage: 3 TABLET, DAILY OR AS NEEDED
     Route: 048
     Dates: start: 201501, end: 201902

REACTIONS (7)
  - Death [Fatal]
  - General physical health deterioration [Unknown]
  - Decreased activity [Unknown]
  - Incoherent [Unknown]
  - Agitation [Unknown]
  - Feeling of despair [Unknown]
  - Drug dependence [Unknown]

NARRATIVE: CASE EVENT DATE: 201506
